FAERS Safety Report 24592156 (Version 2)
Quarter: 2025Q1

REPORT INFORMATION
  Report Type: Spontaneous
  Country: US (occurrence: US)
  Receive Date: 20241108
  Receipt Date: 20250120
  Transmission Date: 20250409
  Serious: No
  Sender: TAKEDA
  Company Number: US-TAKEDA-2024TUS110981

PATIENT
  Age: 13 Year
  Sex: Male
  Weight: 58 kg

DRUGS (2)
  1. IDURSULFASE [Suspect]
     Active Substance: IDURSULFASE
     Indication: Mucopolysaccharidosis II
     Dosage: UNK UNK, MONTHLY
     Dates: start: 2017
  2. ELAPRASE [Concomitant]
     Active Substance: IDURSULFASE
     Indication: Mucopolysaccharidosis II
     Dosage: UNK UNK, 1/WEEK
     Dates: start: 20150715

REACTIONS (1)
  - Catheter site pain [Recovered/Resolved]

NARRATIVE: CASE EVENT DATE: 20241101
